FAERS Safety Report 8376535-6 (Version None)
Quarter: 2012Q2

REPORT INFORMATION
  Report Type: 
  Country: None (occurrence: None)
  Receive Date: 20120522
  Receipt Date: 20120515
  Transmission Date: 20120825
  Serious: Yes (Death, Other)
  Sender: FDA-Public Use
  Company Number: US-BAYER-201015437NA

PATIENT
  Age: 82 Year
  Sex: Male
  Weight: 95.238 kg

DRUGS (31)
  1. TRASYLOL [Suspect]
     Indication: VENTRICULAR SEPTAL DEFECT REPAIR
  2. L-CARNITINE [Concomitant]
     Dosage: UNK UNK, QD
  3. ISOFLURANE [Concomitant]
  4. RED BLOOD CELLS [Concomitant]
     Dosage: 5 U, UNK
  5. LISINOPRIL [Concomitant]
     Indication: HYPERTENSION
     Dosage: UNK
     Dates: start: 19900101, end: 20060101
  6. NITROGLYCERIN [Concomitant]
     Indication: CHEST PAIN
     Dosage: UNK, PRN
     Dates: start: 20050818
  7. GLUCOPHAGE [Concomitant]
     Dosage: 500 MG, QD
  8. TRASYLOL [Suspect]
     Indication: MITRAL VALVE REPAIR
  9. INTEGRILIN [Concomitant]
     Indication: ACUTE CORONARY SYNDROME
     Route: 042
  10. CARBIDOPA [Concomitant]
     Dosage: 10 MG, QD
  11. PHENYLEPHRINE HCL [Concomitant]
  12. COENZYME Q10 [Concomitant]
     Dosage: UNK, BID
  13. SAM-E [Concomitant]
     Dosage: UNK UNK, QD
  14. PRIMATENE MIST [Concomitant]
  15. VITAMIN A [Concomitant]
     Dosage: UNK UNK, QD
  16. ASCORBIC ACID [Concomitant]
     Dosage: UNK UNK, QD
  17. ACIPHEX [Concomitant]
     Dosage: UNK UNK, QD
  18. PLATELETS [Concomitant]
     Dosage: 8 U, UNK
  19. TRASYLOL [Suspect]
     Indication: CORONARY ARTERY BYPASS
     Dosage: 200 ML (PUMP PRIME)
     Route: 042
     Dates: start: 20060319
  20. MAXZIDE [Concomitant]
     Dosage: 75/50 MG DAILY
  21. COD LIVER OIL [Concomitant]
     Dosage: 30/MI DAILY
  22. MULTI-VITAMIN [Concomitant]
     Dosage: UNK UNK, QD
  23. MAGNESIUM [Concomitant]
     Dosage: UNK UNK, QD
  24. HEPARIN [Concomitant]
  25. MANNITOL [Concomitant]
  26. CARDIOPLEGIA [Concomitant]
  27. ASPIRIN [Concomitant]
     Dosage: UNK
     Dates: start: 19860101, end: 20060101
  28. HAWTHORN [Concomitant]
     Dosage: UNK UNK, QD
  29. FRESH FROZEN PLASMA [Concomitant]
     Dosage: 12 U, UNK
  30. VITAMIN E [Concomitant]
     Dosage: UNK UNK, QD
  31. LIDOCAINE [Concomitant]
     Dosage: 100 MG, UNK

REACTIONS (5)
  - DEATH [None]
  - INJURY [None]
  - RENAL FAILURE ACUTE [None]
  - RENAL FAILURE [None]
  - PAIN [None]
